FAERS Safety Report 5449590-0 (Version None)
Quarter: 2007Q3

REPORT INFORMATION
  Report Type: 
  Country: None (occurrence: None)
  Receive Date: 20070910
  Receipt Date: 20070827
  Transmission Date: 20080115
  Serious: Yes (Hospitalization)
  Sender: FDA-Public Use
  Company Number: 100#08#2007-03344

PATIENT
  Age: 61 Year
  Sex: Female

DRUGS (2)
  1. METFORMIN (METFORMIN) (METFORMIN) [Suspect]
     Indication: TYPE 2 DIABETES MELLITUS
     Dosage: 1 G TWICE DAILY
  2. FUROSEMIDE (FUROSEMIDE) (FUROSEMIDE) [Suspect]
     Indication: DRUG USE FOR UNKNOWN INDICATION

REACTIONS (13)
  - BICUSPID AORTIC VALVE [None]
  - BLOOD PRESSURE DECREASED [None]
  - BLOOD SODIUM DECREASED [None]
  - CONTINUOUS HAEMODIAFILTRATION [None]
  - DRUG INTERACTION [None]
  - GINGIVAL BLEEDING [None]
  - HAEMODIALYSIS [None]
  - LACTIC ACIDOSIS [None]
  - PROTHROMBIN TIME PROLONGED [None]
  - RENAL FAILURE [None]
  - RESPIRATORY DISORDER [None]
  - RESPIRATORY RATE INCREASED [None]
  - SEPSIS [None]
